FAERS Safety Report 5558175-7 (Version None)
Quarter: 2007Q4

REPORT INFORMATION
  Report Type: 
  Country: None (occurrence: None)
  Receive Date: 20071214
  Receipt Date: 20071205
  Transmission Date: 20080405
  Serious: Yes (Disabling, Other)
  Sender: FDA-Public Use
  Company Number: BR-PFIZER INC-2007088464

PATIENT
  Sex: Female

DRUGS (5)
  1. CELEBRA [Suspect]
     Indication: HEAD INJURY
     Route: 048
  2. CELEBRA [Suspect]
     Indication: ARTHRALGIA
  3. CELEBRA [Suspect]
     Indication: OSTEOPENIA
  4. AMLODIPINE [Concomitant]
     Indication: HYPERTENSION
     Route: 048
  5. LOSARTAN POTASSIUM [Concomitant]
     Indication: HYPERTENSION
     Route: 048
     Dates: start: 20070401

REACTIONS (2)
  - ARTHRALGIA [None]
  - TENDONITIS [None]
